FAERS Safety Report 5597330-7 (Version None)
Quarter: 2008Q1

REPORT INFORMATION
  Report Type: 
  Country: None (occurrence: None)
  Receive Date: 20080121
  Receipt Date: 20080110
  Transmission Date: 20080703
  Serious: Yes (Other)
  Sender: FDA-Public Use
  Company Number: US-BAYER-200810183BCC

PATIENT
  Age: 57 Year
  Sex: Female
  Weight: 91 kg

DRUGS (8)
  1. ALEVE [Suspect]
     Indication: BACK PAIN
     Dosage: UNIT DOSE: 220 MG
     Route: 048
     Dates: start: 20080101, end: 20080105
  2. ALEVE [Suspect]
     Dosage: UNIT DOSE: 220 MG
     Route: 048
     Dates: start: 20080106
  3. AMARYL [Concomitant]
  4. INSULIN [Concomitant]
  5. AVANDIA [Concomitant]
  6. METFORMIN [Concomitant]
  7. TOPROL-XL [Concomitant]
  8. DIOVAN [Concomitant]

REACTIONS (1)
  - CHROMATURIA [None]
